FAERS Safety Report 4738667-0 (Version None)
Quarter: 2005Q3

REPORT INFORMATION
  Report Type: 
  Country: None (occurrence: None)
  Receive Date: 20050803
  Receipt Date: 20050719
  Transmission Date: 20060218
  Serious: Yes (Hospitalization)
  Sender: FDA-Public Use
  Company Number: GBS050717965

PATIENT
  Sex: Female

DRUGS (1)
  1. RALOXIFENE HCL [Suspect]
     Indication: OSTEOPOROSIS
     Dosage: 60 MG

REACTIONS (3)
  - ANGIONEUROTIC OEDEMA [None]
  - CYANOSIS [None]
  - SINUS BRADYCARDIA [None]
